FAERS Safety Report 7528030-1 (Version None)
Quarter: 2011Q2

REPORT INFORMATION
  Report Type: 
  Country: None (occurrence: None)
  Receive Date: 20110607
  Receipt Date: 20090614
  Transmission Date: 20111010
  Serious: Yes (Other)
  Sender: FDA-Public Use
  Company Number: US-BAYER-200923272NA

PATIENT
  Age: 55 Year
  Sex: Female
  Weight: 57 kg

DRUGS (20)
  1. FLUCONAZOLE [Concomitant]
     Dosage: 100 ML, UNK
     Route: 048
     Dates: start: 20040831, end: 20040916
  2. LIPITOR [Concomitant]
     Dosage: 40 MG, UNK
     Route: 048
     Dates: start: 20040808
  3. ZYRTEC [Concomitant]
     Dosage: 10 MG, UNK
     Route: 048
  4. CELEXA [Concomitant]
     Dosage: 20 MG, UNK
     Route: 048
     Dates: start: 20040808
  5. DIOVAN [Concomitant]
     Dosage: UNK
     Route: 048
     Dates: start: 20040809
  6. LIDOCAINE [Concomitant]
     Dosage: 100 MG, UNK
     Route: 042
     Dates: start: 20040901
  7. ACETYLSALICYLIC ACID SRT [Concomitant]
     Dosage: 81 MG, UNK
     Route: 048
     Dates: start: 20040809, end: 20040920
  8. BENADRYL [Concomitant]
     Dosage: 50 MG, UNK
     Route: 042
     Dates: start: 20040901
  9. COREG [Concomitant]
     Dosage: 3.125 MG, UNK
     Route: 048
     Dates: start: 20040809
  10. IPRATROPIUM BROMIDE [Concomitant]
     Dosage: 18 MCG
     Dates: start: 20040831, end: 20040920
  11. MILRINONE [Concomitant]
     Dosage: 20 MG, UNK
     Dates: start: 20040831, end: 20040920
  12. TRASYLOL [Suspect]
     Indication: UNEVALUABLE EVENT
     Dosage: 100 FOLLOWED BY 50CC/HR
     Route: 042
     Dates: start: 20040901, end: 20040901
  13. FLUCONAZOLE [Concomitant]
     Dosage: 200 ML
     Route: 048
     Dates: start: 20040831, end: 20040916
  14. FUROSEMIDE [Concomitant]
     Dosage: 40 MG, UNK
     Route: 048
     Dates: start: 20040901, end: 20041012
  15. HEPARIN [Concomitant]
     Dosage: 10,000 UNITS
     Route: 042
     Dates: start: 20040901, end: 20040913
  16. DOPAMINE HCL [Concomitant]
     Dosage: UNK
     Route: 042
     Dates: start: 20040901
  17. NITROUS OXIDE [Concomitant]
     Dosage: UNK
     Dates: start: 20040901
  18. INSPRA [Concomitant]
     Dosage: 25 MG, UNK
     Dates: start: 20040809
  19. FUROSEMIDE [Concomitant]
     Dosage: 80 MG
     Route: 048
     Dates: start: 20040901, end: 20041012
  20. HEPARIN [Concomitant]
     Dosage: 5000 U, UNK
     Route: 042
     Dates: start: 20040901, end: 20040913

REACTIONS (9)
  - ANXIETY [None]
  - INJURY [None]
  - UNEVALUABLE EVENT [None]
  - DEPRESSION [None]
  - EMOTIONAL DISTRESS [None]
  - PAIN [None]
  - ANHEDONIA [None]
  - RENAL FAILURE [None]
  - FEAR [None]
